FAERS Safety Report 7050392-2 (Version None)
Quarter: 2010Q4

REPORT INFORMATION
  Report Type: 
  Country: None (occurrence: None)
  Receive Date: 20101013
  Receipt Date: 20101001
  Transmission Date: 20110411
  Serious: Yes (Other)
  Sender: FDA-Public Use
  Company Number: 011300

PATIENT
  Age: 80 Year
  Sex: Female

DRUGS (4)
  1. PLETAL [Suspect]
     Dosage: 100 MG, DAILY DOSE, ORAL
     Route: 048
     Dates: start: 20100924, end: 20100930
  2. ASPIRIN [Concomitant]
  3. AMLODIPINE [Concomitant]
  4. CANDESARTAN CILEXETIL [Concomitant]

REACTIONS (3)
  - CONDITION AGGRAVATED [None]
  - HYPOTENSION [None]
  - RENAL FAILURE [None]
